FAERS Safety Report 15234964 (Version 1)
Quarter: 2018Q3

REPORT INFORMATION
  Report Type: Spontaneous
  Country: DE (occurrence: DE)
  Receive Date: 20180803
  Receipt Date: 20180803
  Transmission Date: 20181010
  Serious: Yes (Other)
  Sender: FDA-Public Use
  Company Number: DE-PAN-2017-000228

PATIENT
  Age: 17 Year
  Sex: Male

DRUGS (4)
  1. VALGANCYCLOVIR [Suspect]
     Active Substance: VALGANCICLOVIR
     Indication: PROPHYLAXIS
  2. TACROLIMUS. [Suspect]
     Active Substance: TACROLIMUS
     Indication: LUNG TRANSPLANT
  3. PREDNISONE. [Suspect]
     Active Substance: PREDNISONE
     Indication: LUNG TRANSPLANT
  4. MYCOPHENOLATE MOFETIL. [Suspect]
     Active Substance: MYCOPHENOLATE MOFETIL
     Indication: LUNG TRANSPLANT

REACTIONS (5)
  - Graft versus host disease [Recovered/Resolved]
  - Off label use [Unknown]
  - Cytomegalovirus infection [Recovered/Resolved]
  - Lung transplant rejection [Recovered/Resolved]
  - Drug ineffective [Unknown]
